FAERS Safety Report 16677228 (Version 1)
Quarter: 2019Q3

REPORT INFORMATION
  Report Type: Spontaneous
  Country: GB (occurrence: GB)
  Receive Date: 20190807
  Receipt Date: 20190807
  Transmission Date: 20191004
  Serious: Yes (Life-Threatening, Disabling, Other)
  Sender: FDA-Public Use
  Company Number: GB-AUROBINDO-AUR-APL-2019-045752

PATIENT

DRUGS (1)
  1. BUPIVACAINE HYDROCHLORIDE. [Suspect]
     Active Substance: BUPIVACAINE HYDROCHLORIDE
     Indication: PRODUCT USED FOR UNKNOWN INDICATION
     Dosage: UNK
     Route: 048

REACTIONS (23)
  - Cardiotoxicity [Unknown]
  - Dependence [Unknown]
  - Cough [Unknown]
  - Nausea [Unknown]
  - Sneezing [Unknown]
  - Cognitive disorder [Unknown]
  - Suicidal behaviour [Unknown]
  - Wheezing [Unknown]
  - Confusional state [Unknown]
  - Aggression [Unknown]
  - Vomiting [Unknown]
  - Coma [Unknown]
  - Dyspnoea [Unknown]
  - Dehydration [Unknown]
  - Psychomotor hyperactivity [Unknown]
  - Delirium [Unknown]
  - Anger [Unknown]
  - Myocardial infarction [Unknown]
  - Fatigue [Unknown]
  - Intentional overdose [Unknown]
  - Anxiety [Unknown]
  - Cardiac arrest [Unknown]
  - Neurotoxicity [Not Recovered/Not Resolved]
